FAERS Safety Report 18227555 (Version 1)
Quarter: 2020Q3

REPORT INFORMATION
  Report Type: Spontaneous
  Country: RU (occurrence: RU)
  Receive Date: 20200903
  Receipt Date: 20200903
  Transmission Date: 20201103
  Serious: Yes (Other)
  Sender: FDA-Public Use
  Company Number: NVSC2020RU240017

PATIENT
  Sex: Female

DRUGS (1)
  1. AMOKSIKLAV QUICKTAB [Suspect]
     Active Substance: AMOXICILLIN\CLAVULANATE POTASSIUM
     Indication: TONSILLITIS
     Dosage: 1000 MG, BID(1 TAB ORALLY VIA DISSOLUTION)
     Route: 048
     Dates: start: 20200614

REACTIONS (2)
  - Product use in unapproved indication [Unknown]
  - Oral candidiasis [Recovered/Resolved]

NARRATIVE: CASE EVENT DATE: 2020
